FAERS Safety Report 18551457 (Version 1)
Quarter: 2020Q4

REPORT INFORMATION
  Report Type: Spontaneous
  Country: BR (occurrence: BR)
  Receive Date: 20201126
  Receipt Date: 20201126
  Transmission Date: 20210114
  Serious: Yes (Hospitalization, Other)
  Sender: FDA-Public Use
  Company Number: NVSC2020BR312249

PATIENT
  Age: 69 Year
  Sex: Female

DRUGS (5)
  1. ALPELISIB [Suspect]
     Active Substance: ALPELISIB
     Indication: BREAST CANCER METASTATIC
     Dosage: 300 MG, QD
     Route: 065
  2. METHOTREXATE. [Concomitant]
     Active Substance: METHOTREXATE
     Indication: CHEMOTHERAPY
     Dosage: 12 MG
     Route: 065
     Dates: end: 20200918
  3. CETIRIZINE [Concomitant]
     Active Substance: CETIRIZINE HYDROCHLORIDE
     Indication: PROPHYLAXIS
     Dosage: 10 MG, QD
     Route: 065
  4. FULVESTRANT. [Suspect]
     Active Substance: FULVESTRANT
     Indication: BREAST CANCER METASTATIC
     Dosage: UNK
     Route: 065
     Dates: start: 201908
  5. DEXAMETHASONE. [Concomitant]
     Active Substance: DEXAMETHASONE
     Indication: CHEMOTHERAPY
     Dosage: 4 MG (TWICE A WEEK FOR 4 WEEKS, FOLLOWED BY ONCE A WEEK)
     Route: 065
     Dates: end: 20200918

REACTIONS (13)
  - Mucosal inflammation [Unknown]
  - Metastases to gastrointestinal tract [Unknown]
  - Malignant neoplasm progression [Unknown]
  - Headache [Unknown]
  - Nausea [Unknown]
  - Meningitis [Unknown]
  - Vomiting [Unknown]
  - Pyloric stenosis [Unknown]
  - Toxicity to various agents [Unknown]
  - Breast cancer metastatic [Unknown]
  - Metastases to central nervous system [Unknown]
  - Post procedural complication [Unknown]
  - Rash [Unknown]

NARRATIVE: CASE EVENT DATE: 202007
